FAERS Safety Report 20055027 (Version 1)
Quarter: 2021Q4

REPORT INFORMATION
  Report Type: Spontaneous
  Country: None (occurrence: US)
  Receive Date: 20211110
  Receipt Date: 20211110
  Transmission Date: 20220304
  Serious: Yes (Hospitalization, Other)
  Sender: FDA-Public Use
  Company Number: US-Avion Pharmaceuticals, LLC-2121709

PATIENT
  Age: 21 Year
  Sex: Female

DRUGS (2)
  1. GLOPERBA [Suspect]
     Active Substance: COLCHICINE
     Indication: Pericarditis
     Route: 065
  2. high dose non-steroidal anti-inflammatories [Concomitant]
     Route: 065

REACTIONS (5)
  - Acute kidney injury [Unknown]
  - Pyrexia [Unknown]
  - Inflammatory marker increased [Unknown]
  - Splenomegaly [Unknown]
  - Still^s disease [Unknown]
